FAERS Safety Report 16899946 (Version 6)
Quarter: 2020Q1

REPORT INFORMATION
  Report Type: Report from Study
  Country: US (occurrence: US)
  Receive Date: 20191009
  Receipt Date: 20200319
  Transmission Date: 20200409
  Serious: Yes (Hospitalization)
  Sender: FDA-Public Use
  Company Number: US-ACTELION-A-US2019-195815

PATIENT
  Age: 44 Year
  Sex: Male
  Weight: 78.91 kg

DRUGS (24)
  1. UPTRAVI [Suspect]
     Active Substance: SELEXIPAG
     Dosage: 1600 MCG, BID
     Route: 048
     Dates: start: 20191007
  2. BUMEX [Concomitant]
     Active Substance: BUMETANIDE
     Dosage: 2 MG, BID
     Route: 048
  3. UPTRAVI [Suspect]
     Active Substance: SELEXIPAG
     Dosage: 1000 MCG, BID
     Route: 048
  4. LASIX [Concomitant]
     Active Substance: FUROSEMIDE
     Route: 042
  5. LASIX [Concomitant]
     Active Substance: FUROSEMIDE
     Dosage: UNK
     Route: 048
  6. COUMADIN [Concomitant]
     Active Substance: WARFARIN SODIUM
  7. LISINOPRIL. [Concomitant]
     Active Substance: LISINOPRIL
  8. NOVOLOG [Concomitant]
     Active Substance: INSULIN ASPART
     Dosage: 3 U QD, BEFORE BREAKFAST
     Route: 058
  9. NOVOLOG [Concomitant]
     Active Substance: INSULIN ASPART
     Dosage: 5 U QD, BEFORE BREAKFAST
     Route: 058
  10. SYNTHROID [Concomitant]
     Active Substance: LEVOTHYROXINE SODIUM
     Dosage: 25 MCG, QD
     Route: 048
  11. ADEMPAS [Concomitant]
     Active Substance: RIOCIGUAT
     Dosage: 2.5 MG, TID
     Dates: start: 201905
  12. NOVOLOG [Concomitant]
     Active Substance: INSULIN ASPART
     Dosage: 5 U QD, BEFORE DINNER
     Route: 058
  13. LEVEMIR [Concomitant]
     Active Substance: INSULIN DETEMIR
     Dosage: 8 U, QD
     Route: 058
  14. UPTRAVI [Suspect]
     Active Substance: SELEXIPAG
     Indication: PULMONARY HYPERTENSION
     Dosage: 200 MCG, BID
     Route: 048
     Dates: start: 201908
  15. WARFARIN [Concomitant]
     Active Substance: WARFARIN
     Dosage: 2.5 MG, 3X WEEK (MON, WED, FRI)
     Route: 048
  16. WARFARIN [Concomitant]
     Active Substance: WARFARIN
     Dosage: 5 MG, 4X WEEK (SUN, TUES, THURS)
     Route: 048
  17. LOSARTAN. [Concomitant]
     Active Substance: LOSARTAN
  18. ZAROXOLYN [Concomitant]
     Active Substance: METOLAZONE
     Dosage: 5 MG, QD
     Route: 048
  19. COREG [Concomitant]
     Active Substance: CARVEDILOL
  20. INSULIN [Concomitant]
     Active Substance: INSULIN NOS
  21. LIPITOR [Concomitant]
     Active Substance: ATORVASTATIN CALCIUM
     Dosage: 20 MG, QD
     Route: 048
  22. NOVOLOG [Concomitant]
     Active Substance: INSULIN ASPART
     Dosage: 3 U QD, BEFORE LUNCH
     Route: 058
  23. OPSUMIT [Suspect]
     Active Substance: MACITENTAN
     Indication: PULMONARY HYPERTENSION
     Dosage: 10 MG, QD
     Route: 048
     Dates: start: 20190820
  24. ASPIRIN. [Concomitant]
     Active Substance: ASPIRIN

REACTIONS (26)
  - Renal failure [Unknown]
  - Anaemia [Unknown]
  - Haemoglobin decreased [Unknown]
  - Blood sodium decreased [Unknown]
  - Fatigue [Unknown]
  - Orthopnoea [Recovered/Resolved]
  - Dyspnoea paroxysmal nocturnal [Recovered/Resolved]
  - Autoimmune haemolytic anaemia [Unknown]
  - Hypovolaemia [Unknown]
  - Transfusion [Unknown]
  - Pyrexia [Unknown]
  - Haemoptysis [Recovered/Resolved]
  - Fluid overload [Recovered/Resolved]
  - Pulmonary hypertension [Recovered/Resolved]
  - Dyspnoea [Recovered/Resolved]
  - Weight increased [Recovered/Resolved]
  - Exercise tolerance decreased [Recovered/Resolved]
  - Atypical pneumonia [Unknown]
  - Echocardiogram abnormal [Not Recovered/Not Resolved]
  - Fluid retention [Unknown]
  - Peripheral swelling [Recovered/Resolved]
  - Vitamin D decreased [Unknown]
  - Dyspnoea exertional [Unknown]
  - Hyponatraemia [Unknown]
  - Abdominal distension [Recovered/Resolved]
  - Lung operation [Unknown]

NARRATIVE: CASE EVENT DATE: 20190816
